FAERS Safety Report 24602971 (Version 1)
Quarter: 2024Q4

REPORT INFORMATION
  Report Type: Spontaneous
  Country: US (occurrence: US)
  Receive Date: 20241111
  Receipt Date: 20241111
  Transmission Date: 20250114
  Serious: Yes (Other)
  Sender: MYLAN
  Company Number: US-MYLANLABS-2024M1100267

PATIENT
  Age: 22 Year
  Sex: Female

DRUGS (6)
  1. BUSULFAN [Suspect]
     Active Substance: BUSULFAN
     Indication: Bone marrow conditioning regimen
     Dosage: UNK
     Route: 065
  2. ESTRADIOL [Suspect]
     Active Substance: ESTRADIOL
     Indication: Ovarian failure
     Dosage: UNK
     Route: 062
  3. ESTRADIOL [Suspect]
     Active Substance: ESTRADIOL
     Dosage: UNK, INITIALLY DISCONTINUED AND LATER RESTARTED
     Route: 062
  4. CYCLOPHOSPHAMIDE [Suspect]
     Active Substance: CYCLOPHOSPHAMIDE
     Indication: Bone marrow conditioning regimen
     Dosage: UNK
     Route: 065
  5. MEDROXYPROGESTERONE ACETATE [Suspect]
     Active Substance: MEDROXYPROGESTERONE ACETATE
     Indication: Ovarian failure
     Dosage: UNK
     Route: 048
  6. ELAGOLIX [Concomitant]
     Active Substance: ELAGOLIX
     Indication: Endometriosis
     Dosage: UNK
     Route: 065

REACTIONS (3)
  - Drug ineffective [Unknown]
  - Pruritus [Unknown]
  - Heavy menstrual bleeding [Unknown]
